FAERS Safety Report 4817331-3 (Version None)
Quarter: 2005Q4

REPORT INFORMATION
  Report Type: 
  Country: None (occurrence: None)
  Receive Date: 20051029
  Receipt Date: 20050628
  Transmission Date: 20060501
  Serious: Yes (Hospitalization)
  Sender: FDA-Public Use
  Company Number: 05P-163-0287967-00

PATIENT
  Age: 53 Year
  Sex: Female
  Weight: 79.8331 kg

DRUGS (11)
  1. HUMIRA [Suspect]
     Indication: RHEUMATOID ARTHRITIS
     Dosage: 40 MG, 1 IN 2 WK, SUBCUTANEOUS
     Route: 058
     Dates: start: 20031201, end: 20040601
  2. GLIPIZIDE [Concomitant]
  3. VICODIN [Concomitant]
  4. CLOPIDOGREL BISULFATE [Concomitant]
  5. PREDNISONE [Concomitant]
  6. GLUCOPHAGE [Concomitant]
  7. HYDROXYCHLOROQUINE PHOSPHATE [Concomitant]
  8. METHOTREXATE [Concomitant]
  9. METOPROLOL TARTRATE [Concomitant]
  10. MOEXIPRIL HYDROCHLORIDE [Concomitant]
  11. INSULIN [Concomitant]

REACTIONS (3)
  - ABSCESS [None]
  - CELLULITIS [None]
  - LOCALISED INFECTION [None]
